FAERS Safety Report 9721000 (Version 4)
Quarter: 2014Q1

REPORT INFORMATION
  Report Type: Spontaneous
  Country: JP (occurrence: JP)
  Receive Date: 20131129
  Receipt Date: 20140124
  Transmission Date: 20141002
  Serious: Yes (Hospitalization, Other)
  Sender: FDA-Public Use
  Company Number: JP-ASTRAZENECA-2013SE74664

PATIENT
  Age: 80 Year
  Sex: Male
  Weight: 48 kg

DRUGS (2)
  1. CASODEX [Suspect]
     Indication: PROSTATE CANCER
     Route: 048
     Dates: start: 20110801, end: 20120228
  2. ZOLADEX LA [Suspect]
     Indication: PROSTATE CANCER
     Route: 058
     Dates: start: 20110815, end: 20120130

REACTIONS (2)
  - Lung disorder [Recovering/Resolving]
  - Pulmonary alveolar haemorrhage [Unknown]
